FAERS Safety Report 17299810 (Version 1)
Quarter: 2020Q1

REPORT INFORMATION
  Report Type: Spontaneous
  Country: US (occurrence: US)
  Receive Date: 20200121
  Receipt Date: 20200121
  Transmission Date: 20200409
  Serious: No
  Sender: FDA-Public Use
  Company Number: None

PATIENT
  Age: 38 Year
  Sex: Male
  Weight: 107.55 kg

DRUGS (6)
  1. ANTARA [Concomitant]
     Active Substance: FENOFIBRATE
  2. IBUPROFEN. [Concomitant]
     Active Substance: IBUPROFEN
  3. TESTOSTERONE CYPIONATE INJECTION, USP [Suspect]
     Active Substance: TESTOSTERONE CYPIONATE
     Indication: PRODUCT USED FOR UNKNOWN INDICATION
     Dosage: ?          QUANTITY:1 INJECTION(S);OTHER FREQUENCY:EVERY 2 WEEKS;?
     Route: 030
  4. CLONAZEPAM. [Concomitant]
     Active Substance: CLONAZEPAM
  5. ADVIL COLD AND SINUS [Concomitant]
     Active Substance: IBUPROFEN\PSEUDOEPHEDRINE HYDROCHLORIDE
  6. TYLENOL [Concomitant]
     Active Substance: ACETAMINOPHEN

REACTIONS (7)
  - Apathy [None]
  - Product substitution issue [None]
  - Decreased appetite [None]
  - Sleep disorder [None]
  - Therapeutic response changed [None]
  - Product formulation issue [None]
  - Anger [None]

NARRATIVE: CASE EVENT DATE: 20200118
